FAERS Safety Report 25645996 (Version 1)
Quarter: 2025Q3

REPORT INFORMATION
  Report Type: Spontaneous
  Country: US (occurrence: US)
  Receive Date: 20250805
  Receipt Date: 20250805
  Transmission Date: 20251020
  Serious: Yes (Other)
  Sender: PFIZER
  Company Number: US-PFIZER INC-PV202500093602

PATIENT
  Sex: Female

DRUGS (4)
  1. PALBOCICLIB [Suspect]
     Active Substance: PALBOCICLIB
  2. INAVOLISIB [Suspect]
     Active Substance: INAVOLISIB
  3. INAVOLISIB [Suspect]
     Active Substance: INAVOLISIB
  4. FULVESTRANT [Suspect]
     Active Substance: FULVESTRANT

REACTIONS (6)
  - Thrombocytopenia [Recovered/Resolved]
  - Glycosylated haemoglobin increased [Recovered/Resolved]
  - Blood glucose increased [Recovered/Resolved]
  - Stomatitis [Recovered/Resolved]
  - Fatigue [Recovered/Resolved]
  - Anaemia [Recovered/Resolved]
